FAERS Safety Report 11148552 (Version 1)
Quarter: 2015Q2

REPORT INFORMATION
  Report Type: Spontaneous
  Country: AR (occurrence: AR)
  Receive Date: 20150529
  Receipt Date: 20150529
  Transmission Date: 20150821
  Serious: Yes (Hospitalization)
  Sender: FDA-Public Use
  Company Number: AR-PFIZER INC-2015120814

PATIENT
  Age: 63 Year
  Sex: Male

DRUGS (1)
  1. INLYTA [Suspect]
     Active Substance: AXITINIB
     Indication: RENAL CELL CARCINOMA
     Dosage: 5 MG, DAILY
     Dates: start: 20150313, end: 20150321

REACTIONS (5)
  - Prostatic pain [Unknown]
  - Urinary bladder haemorrhage [Not Recovered/Not Resolved]
  - Urethral obstruction [Unknown]
  - Bladder pain [Unknown]
  - Renal disorder [Unknown]

NARRATIVE: CASE EVENT DATE: 20150402
